FAERS Safety Report 10384214 (Version 3)
Quarter: 2014Q4

REPORT INFORMATION
  Report Type: Spontaneous
  Country: US (occurrence: None)
  Receive Date: 20140812
  Receipt Date: 20141113
  Transmission Date: 20150528
  Serious: Yes (Hospitalization, Disabling)
  Sender: FDA-Public Use
  Company Number: 2014-US-009686

PATIENT
  Age: 56 Year
  Sex: Female

DRUGS (2)
  1. MORPHINE [Suspect]
     Active Substance: MORPHINE
     Indication: PELVIC PAIN
     Dates: start: 2014
  2. XYREM [Suspect]
     Active Substance: SODIUM OXYBATE
     Indication: NARCOLEPSY
     Route: 048
     Dates: start: 200602, end: 2006

REACTIONS (13)
  - Arthralgia [None]
  - Pyrexia [None]
  - Stress [None]
  - Malaise [None]
  - Unresponsive to stimuli [None]
  - Pneumonia [None]
  - Drug interaction [None]
  - Mobility decreased [None]
  - Joint injury [None]
  - Seasonal allergy [None]
  - Fatigue [None]
  - Dehydration [None]
  - Pelvic pain [None]

NARRATIVE: CASE EVENT DATE: 2013
